FAERS Safety Report 16780212 (Version 2)
Quarter: 2019Q4

REPORT INFORMATION
  Report Type: Spontaneous
  Country: DK (occurrence: DK)
  Receive Date: 20190906
  Receipt Date: 20191014
  Transmission Date: 20200122
  Serious: No
  Sender: FDA-Public Use
  Company Number: DK-BEH-2019106536

PATIENT
  Sex: Male

DRUGS (2)
  1. BERINERT [Suspect]
     Active Substance: HUMAN C1-ESTERASE INHIBITOR
     Route: 065
  2. ALCOHOL PAD [Suspect]
     Active Substance: ISOPROPYL ALCOHOL
     Route: 065

REACTIONS (4)
  - Device issue [Unknown]
  - Product solubility abnormal [Unknown]
  - Product preparation issue [Unknown]
  - No adverse event [Unknown]
